FAERS Safety Report 15153494 (Version 1)
Quarter: 2018Q3

REPORT INFORMATION
  Report Type: Spontaneous
  Country: US (occurrence: US)
  Receive Date: 20180619
  Receipt Date: 20180619
  Transmission Date: 20181010
  Serious: Yes (Life-Threatening, Hospitalization)
  Sender: FDA-Public Use
  Company Number: None

PATIENT
  Age: 58 Year
  Sex: Male
  Weight: 86.18 kg

DRUGS (2)
  1. IBUPROFIN [Concomitant]
     Active Substance: IBUPROFEN
  2. LOSARTAN POTASSIUM. [Suspect]
     Active Substance: LOSARTAN POTASSIUM
     Indication: HYPERTENSION
     Dosage: ?          QUANTITY:1 DF DOSAGE FORM;?
     Route: 048
     Dates: start: 20180202, end: 20180608

REACTIONS (5)
  - Chest pain [None]
  - Recalled product [None]
  - Product quality issue [None]
  - Chest discomfort [None]
  - Drug ineffective [None]

NARRATIVE: CASE EVENT DATE: 20180206
